FAERS Safety Report 24592474 (Version 2)
Quarter: 2025Q2

REPORT INFORMATION
  Report Type: Report from Study
  Country: US (occurrence: US)
  Receive Date: 20241108
  Receipt Date: 20250421
  Transmission Date: 20250716
  Serious: Yes (Hospitalization, Other)
  Sender: UCB
  Company Number: US-UCBSA-2024025660

PATIENT
  Sex: Male
  Weight: 25.8 kg

DRUGS (8)
  1. FINTEPLA [Suspect]
     Active Substance: FENFLURAMINE
     Indication: Severe myoclonic epilepsy of infancy
     Dosage: 0.5 ML EVERY NIGHT FOR 7 D, 0.5 ML TWICE DAILY FOR 7D, 0.5 ML EVERY A.M AND 1 ML EVERY PM FOR 7 DAYS
     Dates: start: 2024
  2. FINTEPLA [Suspect]
     Active Substance: FENFLURAMINE
     Dosage: 1 MILLILITER, 2X/DAY (BID)
     Route: 048
  3. FINTEPLA [Suspect]
     Active Substance: FENFLURAMINE
     Dosage: 1 MILLILITER, 2X/DAY (BID)
     Dates: start: 2024
  4. FINTEPLA [Suspect]
     Active Substance: FENFLURAMINE
     Dosage: 1.5 MILLILITER, 2X/DAY (BID)
  5. FINTEPLA [Suspect]
     Active Substance: FENFLURAMINE
     Dosage: 1.5 MILLILITER, 2X/DAY (BID)
     Route: 048
     Dates: start: 202408
  6. FINTEPLA [Suspect]
     Active Substance: FENFLURAMINE
     Route: 048
  7. FINTEPLA [Suspect]
     Active Substance: FENFLURAMINE
     Dates: start: 20240925
  8. FINTEPLA [Suspect]
     Active Substance: FENFLURAMINE
     Dosage: 1 ML QAM AND 1 ML QPM
     Dates: start: 2024, end: 20241212

REACTIONS (13)
  - Seizure [Not Recovered/Not Resolved]
  - COVID-19 [Recovered/Resolved]
  - Growth retardation [Not Recovered/Not Resolved]
  - Vagal nerve stimulator implantation [Not Recovered/Not Resolved]
  - Decreased appetite [Recovering/Resolving]
  - Aggression [Not Recovered/Not Resolved]
  - Screaming [Recovering/Resolving]
  - Crying [Recovering/Resolving]
  - Muscle twitching [Recovering/Resolving]
  - Behaviour disorder [Not Recovered/Not Resolved]
  - Therapy change [Not Recovered/Not Resolved]
  - Off label use [Unknown]
  - Incorrect dose administered [Unknown]

NARRATIVE: CASE EVENT DATE: 20240101
